FAERS Safety Report 7156121-6 (Version None)
Quarter: 2010Q4

REPORT INFORMATION
  Report Type: 
  Country: None (occurrence: None)
  Receive Date: 20101214
  Receipt Date: 20101208
  Transmission Date: 20110411
  Serious: Yes (Hospitalization)
  Sender: FDA-Public Use
  Company Number: RU-AMGEN-RUSSP2010001246

PATIENT

DRUGS (4)
  1. VECTIBIX [Suspect]
     Indication: COLORECTAL CANCER
     Dosage: 400 MG
     Dates: start: 20100501
  2. IMODIUM                            /00384302/ [Concomitant]
     Indication: ANTIDIARRHOEAL SUPPORTIVE CARE
     Dosage: 2 MG
     Route: 048
     Dates: start: 20100501
  3. DEXAMETAZON [Concomitant]
     Indication: ANTIALLERGIC THERAPY
     Dosage: 4 MG
     Route: 030
     Dates: start: 20100501
  4. FLUOROURACIL [Concomitant]
     Indication: CHEMOTHERAPY
     Dosage: 750 MG, UNK
     Dates: start: 20100501, end: 20100901

REACTIONS (1)
  - ULCERATIVE KERATITIS [None]
